FAERS Safety Report 7814011-7 (Version None)
Quarter: 2011Q4

REPORT INFORMATION
  Report Type: 
  Country: None (occurrence: None)
  Receive Date: 20111014
  Receipt Date: 20111004
  Transmission Date: 20120403
  Serious: Yes (Death, Other)
  Sender: FDA-Public Use
  Company Number: US-JNJFOC-20041005761

PATIENT
  Sex: Female
  Weight: 53 kg

DRUGS (7)
  1. HYDROCORTISONE [Concomitant]
  2. METRONIDAZOLE [Concomitant]
  3. REMICADE [Suspect]
     Indication: CROHN'S DISEASE
     Dosage: SUMMER 2003
     Route: 042
     Dates: start: 20010115, end: 20030815
  4. MESALAMINE [Suspect]
     Indication: CROHN'S DISEASE
  5. MERCAPTOPURINE [Suspect]
     Indication: CROHN'S DISEASE
  6. MERCAPTOPURINE [Suspect]
  7. PREDNISONE [Concomitant]

REACTIONS (2)
  - HEPATOSPLENIC T-CELL LYMPHOMA [None]
  - NEUTROPENIC SEPSIS [None]
